FAERS Safety Report 8644535 (Version 6)
Quarter: 2013Q4

REPORT INFORMATION
  Report Type: Spontaneous
  Country: GR (occurrence: GR)
  Receive Date: 20120629
  Receipt Date: 20131003
  Transmission Date: 20140711
  Serious: Yes (Hospitalization, Other)
  Sender: FDA-Public Use
  Company Number: GR-009507513-1206USA04481

PATIENT
  Age: 18 Year
  Sex: Female

DRUGS (4)
  1. MAXALT [Suspect]
     Dosage: 10 MG, ONCE
     Route: 048
     Dates: start: 20120621
  2. PONSTAN [Suspect]
     Dates: start: 20120621
  3. DEPONIT [Suspect]
     Dates: start: 20120621
  4. YASMINELLE [Concomitant]

REACTIONS (3)
  - Blood creatine phosphokinase increased [Recovering/Resolving]
  - Vomiting [Unknown]
  - Drug ineffective [Unknown]
